FAERS Safety Report 13478396 (Version 1)
Quarter: 2017Q2

REPORT INFORMATION
  Report Type: Spontaneous
  Country: US (occurrence: US)
  Receive Date: 20170425
  Receipt Date: 20170425
  Transmission Date: 20170830
  Serious: No
  Sender: FDA-Public Use
  Company Number: US-009507513-1704USA005117

PATIENT
  Age: 27 Year
  Sex: Female
  Weight: 49.89 kg

DRUGS (1)
  1. NEXPLANON [Suspect]
     Active Substance: ETONOGESTREL
     Indication: CONTRACEPTION
     Dosage: RIGHT ARM IMPLANT
     Route: 059
     Dates: start: 201512

REACTIONS (5)
  - Photosensitivity reaction [Unknown]
  - Headache [Unknown]
  - Metrorrhagia [Unknown]
  - Pain in extremity [Unknown]
  - Adverse event [Unknown]

NARRATIVE: CASE EVENT DATE: 201701
